FAERS Safety Report 5605095-5 (Version None)
Quarter: 2008Q1

REPORT INFORMATION
  Report Type: 
  Country: None (occurrence: None)
  Receive Date: 20080128
  Receipt Date: 20080122
  Transmission Date: 20080703
  Serious: Yes (Death, Life-Threatening, Hospitalization)
  Sender: FDA-Public Use
  Company Number: DE-MERCK-0801DEU00100

PATIENT
  Age: 47 Year
  Sex: Female

DRUGS (18)
  1. PRIMAXIN [Suspect]
     Indication: SEPSIS
     Route: 041
     Dates: start: 20050419, end: 20050429
  2. VANCOMYCIN [Suspect]
     Indication: CNS VENTRICULITIS
     Route: 042
     Dates: start: 20050417, end: 20050429
  3. VANCOMYCIN [Suspect]
     Indication: INFECTION
     Route: 042
     Dates: start: 20050417, end: 20050429
  4. KALINOR [Concomitant]
     Indication: HYPOKALAEMIA
     Route: 048
     Dates: start: 20050427, end: 20050502
  5. PANTOZOL [Suspect]
     Indication: PROPHYLAXIS AGAINST GASTROINTESTINAL ULCER
     Route: 048
     Dates: start: 20050418
  6. TAVOR [Suspect]
     Indication: RESTLESSNESS
     Route: 048
     Dates: start: 20050321
  7. TAVOR [Suspect]
     Route: 048
     Dates: start: 20050321
  8. DIPIPERON [Suspect]
     Indication: RESTLESSNESS
     Route: 048
     Dates: start: 20050413, end: 20050429
  9. FENISTIL [Concomitant]
     Indication: PRURITUS
     Route: 048
     Dates: start: 20050416, end: 20050428
  10. CALCIUM CARBONATE [Concomitant]
     Indication: MINERAL SUPPLEMENTATION
     Route: 048
     Dates: start: 20050419, end: 20050427
  11. DECORTIN H [Suspect]
     Indication: SKIN DISORDER
     Route: 048
     Dates: start: 20050419
  12. ECURAL [Concomitant]
     Indication: SKIN DISORDER
     Route: 061
     Dates: start: 20050420, end: 20050503
  13. BAYOTENSIN [Suspect]
     Indication: HYPERTENSION
     Route: 048
     Dates: start: 20050426, end: 20050427
  14. BAYOTENSIN [Suspect]
     Route: 048
     Dates: start: 20050422, end: 20050422
  15. BAYOTENSIN [Suspect]
     Route: 048
     Dates: start: 20050424, end: 20050424
  16. RAMIPRIL [Suspect]
     Indication: HYPERTENSION
     Route: 048
     Dates: start: 20050426, end: 20050501
  17. BISOPROLOL FUMARATE [Suspect]
     Indication: HYPERTENSION
     Route: 048
     Dates: start: 20050429
  18. SODIUM CHLORIDE [Concomitant]
     Indication: ELECTROLYTE SUBSTITUTION THERAPY
     Route: 041
     Dates: start: 20050414, end: 20050426

REACTIONS (2)
  - CYSTITIS [None]
  - STEVENS-JOHNSON SYNDROME [None]
